FAERS Safety Report 7542328-2 (Version None)
Quarter: 2011Q2

REPORT INFORMATION
  Report Type: 
  Country: None (occurrence: None)
  Receive Date: 20110613
  Receipt Date: 20110602
  Transmission Date: 20111010
  Serious: Yes (Other)
  Sender: FDA-Public Use
  Company Number: AU-ASTRAZENECA-2011SE34217

PATIENT
  Age: 30 Year
  Sex: Female

DRUGS (2)
  1. BUPIVACAINE HYDROCHLORIDE [Suspect]
     Route: 065
  2. FENTANYL [Suspect]
     Dosage: ONCE/SINGLE ADMINISTRATION
     Route: 008
     Dates: start: 20110325

REACTIONS (4)
  - BRADYCARDIA [None]
  - LOSS OF CONSCIOUSNESS [None]
  - DRUG EXPOSURE DURING PREGNANCY [None]
  - HEART RATE DECREASED [None]
